FAERS Safety Report 6839494-0 (Version None)
Quarter: 2010Q3

REPORT INFORMATION
  Report Type: 
  Country: None (occurrence: None)
  Receive Date: 20100714
  Receipt Date: 20091130
  Transmission Date: 20110219
  Serious: No
  Sender: FDA-Public Use
  Company Number: A0808068A

PATIENT
  Age: 51 Year
  Sex: Male

DRUGS (6)
  1. FLOVENT [Suspect]
     Indication: ASTHMA
     Dosage: 1PUFF SEE DOSAGE TEXT
     Route: 055
     Dates: start: 19940101
  2. MULTI-VITAMIN [Concomitant]
  3. VITAMIN C [Concomitant]
  4. FISH OIL [Concomitant]
  5. VITAMIN D [Concomitant]
  6. UNSPECIFIED MEDICATION [Concomitant]
     Route: 055

REACTIONS (4)
  - CHEST DISCOMFORT [None]
  - DISCOMFORT [None]
  - DRUG INEFFECTIVE [None]
  - PRODUCT QUALITY ISSUE [None]
